FAERS Safety Report 7880406-9 (Version None)
Quarter: 2011Q4

REPORT INFORMATION
  Report Type: 
  Country: None (occurrence: None)
  Receive Date: 20111101
  Receipt Date: 20111020
  Transmission Date: 20120403
  Serious: Yes (Hospitalization, Other)
  Sender: FDA-Public Use
  Company Number: PHEH2011US07629

PATIENT
  Sex: Female
  Weight: 100 kg

DRUGS (6)
  1. LIPITOR [Concomitant]
  2. TEKTURNA HCT [Suspect]
     Dosage: 1 DF (150 MG ALISKIREN AND 12.5 MG HYDROCHLOR), QD
     Route: 048
  3. LOSARTAN POTASSIUM [Concomitant]
  4. SYNTHROID [Concomitant]
  5. METOPROLOL TARTRATE [Concomitant]
  6. ASPIRIN [Concomitant]

REACTIONS (1)
  - CEREBROVASCULAR ACCIDENT [None]
